FAERS Safety Report 15848973 (Version 1)
Quarter: 2019Q1

REPORT INFORMATION
  Report Type: Spontaneous
  Country: IL (occurrence: IL)
  Receive Date: 20190121
  Receipt Date: 20190121
  Transmission Date: 20190417
  Serious: Yes (Hospitalization, Other)
  Sender: FDA-Public Use
  Company Number: IL-PFIZER INC-2019024784

PATIENT
  Sex: Female

DRUGS (1)
  1. XALKORI [Suspect]
     Active Substance: CRIZOTINIB
     Dosage: 1 DF, UNK (AFTER 1 BALL)

REACTIONS (5)
  - Chest pain [Unknown]
  - Asthenia [Unknown]
  - Vomiting [Unknown]
  - Myocardial infarction [Unknown]
  - Dyspnoea [Unknown]
